FAERS Safety Report 15491643 (Version 1)
Quarter: 2018Q4

REPORT INFORMATION
  Report Type: Spontaneous
  Country: FR (occurrence: FR)
  Receive Date: 20181012
  Receipt Date: 20181012
  Transmission Date: 20190205
  Serious: Yes (Other)
  Sender: FDA-Public Use
  Company Number: FR-TEVA-2018-FR-963470

PATIENT
  Age: 65 Year
  Sex: Male

DRUGS (12)
  1. SKENAN [Concomitant]
     Active Substance: MORPHINE SULFATE
     Route: 065
  2. TAREG [Concomitant]
     Active Substance: VALSARTAN
     Route: 065
  3. MESNA. [Concomitant]
     Active Substance: MESNA
     Route: 065
  4. ENDOXAN [Suspect]
     Active Substance: CYCLOPHOSPHAMIDE
     Indication: NEUROENDOCRINE CARCINOMA OF THE SKIN
     Dosage: SINGLE
     Route: 042
     Dates: start: 20101118, end: 20101118
  5. DOXORUBICIN HCL [Suspect]
     Active Substance: DOXORUBICIN HYDROCHLORIDE
     Indication: NEUROENDOCRINE CARCINOMA OF THE SKIN
     Dosage: SINGLE
     Route: 041
     Dates: start: 20101118, end: 20101118
  6. RAPAMUNE [Suspect]
     Active Substance: SIROLIMUS
     Dosage: 2 MILLIGRAM DAILY;
     Route: 048
  7. ONCOVIN [Suspect]
     Active Substance: VINCRISTINE SULFATE
     Indication: NEUROENDOCRINE CARCINOMA OF THE SKIN
     Dosage: SINGLE
     Route: 041
     Dates: start: 20101118, end: 20101118
  8. SETRON [Concomitant]
     Route: 065
  9. XATRAL [Concomitant]
     Active Substance: ALFUZOSIN
     Route: 065
  10. MORPHINE [Concomitant]
     Active Substance: MORPHINE
     Route: 065
  11. CELLCEPT [Suspect]
     Active Substance: MYCOPHENOLATE MOFETIL\MYCOPHENOLATE MOFETIL HYDROCHLORIDE
     Dosage: 500 MILLIGRAM DAILY; 500 MG, 2X/DAY
     Route: 048
  12. SOLU-MEDROL [Concomitant]
     Active Substance: METHYLPREDNISOLONE SODIUM SUCCINATE
     Route: 065

REACTIONS (1)
  - Herpes zoster [Recovered/Resolved]

NARRATIVE: CASE EVENT DATE: 20101123
